FAERS Safety Report 20831467 (Version 2)
Quarter: 2022Q2

REPORT INFORMATION
  Report Type: Spontaneous
  Country: US (occurrence: US)
  Receive Date: 20220516
  Receipt Date: 20220524
  Transmission Date: 20220721
  Serious: No
  Sender: FDA-Public Use
  Company Number: US-MTPC-MTDA2022-0011246

PATIENT

DRUGS (1)
  1. RADICAVA [Suspect]
     Active Substance: EDARAVONE
     Indication: Amyotrophic lateral sclerosis
     Dosage: UNK 14 DAYS ON
     Route: 042
     Dates: start: 20220405, end: 20220427

REACTIONS (1)
  - No adverse event [Unknown]
